FAERS Safety Report 4682672-X (Version None)
Quarter: 2005Q2

REPORT INFORMATION
  Report Type: 
  Country: None (occurrence: None)
  Receive Date: 20050606
  Receipt Date: 20050531
  Transmission Date: 20051028
  Serious: Yes (Life-Threatening)
  Sender: FDA-Public Use
  Company Number: FR-GLAXOSMITHKLINE-B0382827A

PATIENT
  Age: 52 Year
  Sex: Female
  Weight: 60 kg

DRUGS (6)
  1. DIGOXIN [Suspect]
     Indication: CARDIAC FAILURE
     Route: 048
     Dates: start: 20050322, end: 20050324
  2. CIFLOX [Suspect]
     Indication: PROPHYLAXIS
     Route: 042
     Dates: start: 20050302, end: 20050315
  3. EUPANTOL [Suspect]
     Indication: ILL-DEFINED DISORDER
     Route: 042
     Dates: start: 20050303, end: 20050324
  4. ULTIVA [Suspect]
     Indication: ILL-DEFINED DISORDER
     Route: 042
     Dates: start: 20050316, end: 20050325
  5. TAZOCILLINE [Suspect]
     Indication: PROPHYLAXIS
     Route: 042
     Dates: start: 20050302, end: 20050315
  6. DIPRIVAN [Suspect]
     Indication: ILL-DEFINED DISORDER
     Route: 042
     Dates: start: 20050315, end: 20050325

REACTIONS (1)
  - AGRANULOCYTOSIS [None]
